FAERS Safety Report 7647028-6 (Version None)
Quarter: 2011Q3

REPORT INFORMATION
  Report Type: 
  Country: None (occurrence: None)
  Receive Date: 20110801
  Receipt Date: 20110720
  Transmission Date: 20111222
  Serious: Yes (Hospitalization)
  Sender: FDA-Public Use
  Company Number: US-JNJFOC-20110709104

PATIENT
  Sex: Female
  Weight: 40.82 kg

DRUGS (3)
  1. REMICADE [Suspect]
     Indication: RHEUMATOID ARTHRITIS
     Route: 042
     Dates: end: 20110401
  2. REMICADE [Suspect]
     Route: 042
     Dates: start: 20070101
  3. FORTEO [Concomitant]
     Indication: OSTEOPOROSIS

REACTIONS (6)
  - JOINT SURGERY [None]
  - ESCHERICHIA INFECTION [None]
  - ANAEMIA [None]
  - INFUSION SITE INFECTION [None]
  - OSTEONECROSIS [None]
  - MALAISE [None]
